FAERS Safety Report 7274659-8 (Version None)
Quarter: 2011Q1

REPORT INFORMATION
  Report Type: 
  Country: None (occurrence: None)
  Receive Date: 20110202
  Receipt Date: 20110202
  Transmission Date: 20110831
  Serious: Yes (Other)
  Sender: FDA-Public Use
  Company Number: None

PATIENT
  Age: 5 Year
  Sex: Female
  Weight: 19.0511 kg

DRUGS (1)
  1. CETIRIZINE HCL [Suspect]
     Indication: PRURITUS
     Dosage: 1 TSP AS NEEDED PO
     Route: 048
     Dates: start: 20101201, end: 20110130

REACTIONS (1)
  - PYREXIA [None]
